FAERS Safety Report 5224072-X (Version None)
Quarter: 2007Q1

REPORT INFORMATION
  Report Type: 
  Country: None (occurrence: None)
  Receive Date: 20070130
  Receipt Date: 20070126
  Transmission Date: 20070707
  Serious: Yes (Life-Threatening, Hospitalization)
  Sender: FDA-Public Use
  Company Number: HQWYE376215JAN07

PATIENT
  Sex: Male
  Weight: 86.26 kg

DRUGS (10)
  1. MYLOTARG [Suspect]
     Indication: MYELODYSPLASTIC SYNDROME
     Route: 042
     Dates: start: 20070109, end: 20070109
  2. PRINIVIL [Concomitant]
     Indication: HYPERTENSION
     Route: 048
  3. PRILOSEC [Concomitant]
     Indication: GASTROOESOPHAGEAL REFLUX DISEASE
     Route: 048
  4. TRISENOX [Concomitant]
     Indication: MYELODYSPLASTIC SYNDROME
     Route: 042
     Dates: start: 20070102, end: 20070106
  5. ATIVAN [Concomitant]
     Indication: ANXIETY
     Dosage: 1 MG EVERY 1 PRN
     Route: 048
  6. ZOLOFT [Concomitant]
     Indication: ANXIETY
     Route: 048
  7. LOPRESSOR [Concomitant]
     Indication: PROPHYLAXIS
     Route: 048
  8. NITROSTAT [Concomitant]
     Indication: PULMONARY HYPERTENSION
     Dosage: .4 MG EVERY 1 PRN
     Route: 048
  9. LIPITOR [Concomitant]
     Indication: HYPERLIPIDAEMIA
     Route: 048
  10. IMDUR [Concomitant]
     Route: 048

REACTIONS (1)
  - MYOCARDIAL INFARCTION [None]
